FAERS Safety Report 26040423 (Version 3)
Quarter: 2025Q4

REPORT INFORMATION
  Report Type: Spontaneous
  Country: RU (occurrence: RU)
  Receive Date: 20251113
  Receipt Date: 20251205
  Transmission Date: 20260118
  Serious: Yes (Other)
  Sender: BAYER HEALTHCARE PHARMACEUTICALS INC.
  Company Number: RU-BAYER-2025A150392

PATIENT
  Age: 52 Year
  Sex: Female

DRUGS (1)
  1. ANGELIQ [Suspect]
     Active Substance: DROSPIRENONE\ESTRADIOL
     Indication: Menopausal symptoms
     Dosage: UNK
     Route: 048
     Dates: start: 2008, end: 2012

REACTIONS (7)
  - Cervix carcinoma stage II [Not Recovered/Not Resolved]
  - Metastases to bone [None]
  - Hydronephrosis [None]
  - Pelvi-ureteric obstruction [None]
  - Metastases to lymph nodes [None]
  - Cancer pain [Not Recovered/Not Resolved]
  - Insomnia [None]

NARRATIVE: CASE EVENT DATE: 20120101
